FAERS Safety Report 7982298-6 (Version None)
Quarter: 2011Q4

REPORT INFORMATION
  Report Type: 
  Country: None (occurrence: None)
  Receive Date: 20111215
  Receipt Date: 20111207
  Transmission Date: 20120403
  Serious: Yes (Other)
  Sender: FDA-Public Use
  Company Number: US-RB-031256-11

PATIENT
  Age: 52 Year
  Sex: Female

DRUGS (1)
  1. MUCINEX FAST MAX ADULT CONGESTION+COUGH [Suspect]
     Indication: PRODUCT USED FOR UNKNOWN INDICATION
     Dosage: TOOK A TOTAL OF 3 DOSES ONLY
     Route: 048

REACTIONS (7)
  - MYDRIASIS [None]
  - VIITH NERVE PARALYSIS [None]
  - SOMNOLENCE [None]
  - HEADACHE [None]
  - DECREASED APPETITE [None]
  - TONGUE BLISTERING [None]
  - VISION BLURRED [None]
